FAERS Safety Report 13214583 (Version 10)
Quarter: 2019Q2

REPORT INFORMATION
  Report Type: Spontaneous
  Country: US (occurrence: US)
  Receive Date: 20170210
  Receipt Date: 20190402
  Transmission Date: 20190711
  Serious: Yes (Hospitalization)
  Sender: FDA-Public Use
  Company Number: US-IMPAX LABORATORIES, INC-2017-IPXL-00168

PATIENT
  Age: 81 Year
  Sex: Female
  Weight: 48 kg

DRUGS (20)
  1. RYTARY [Suspect]
     Active Substance: CARBIDOPA\LEVODOPA
     Indication: PARKINSON^S DISEASE
     Dosage: UNK
     Route: 048
     Dates: start: 2016
  2. RYTARY [Suspect]
     Active Substance: CARBIDOPA\LEVODOPA
     Dosage: (48.75/195) MG FOUR CAPSULES FOUR TIMES DAILY
     Route: 048
     Dates: start: 20170113, end: 201701
  3. VITAMINS NOS [Concomitant]
     Active Substance: VITAMINS
     Indication: VITAMIN SUPPLEMENTATION
     Dosage: 1 DOSAGE FORM, QD
     Route: 048
  4. MIRALAX [Concomitant]
     Active Substance: POLYETHYLENE GLYCOL 3350
     Indication: CONSTIPATION
     Dosage: UNK, AS NEEDED
     Route: 048
  5. MIDODRINE [Concomitant]
     Active Substance: MIDODRINE
     Indication: HYPOTENSION
     Dosage: 2.5 MG, 1 TABLET EVERY MORNING
     Route: 048
  6. CALCIUM [Concomitant]
     Active Substance: CALCIUM
     Indication: MINERAL SUPPLEMENTATION
     Dosage: 1 DOSAGE FORM, QD
     Route: 048
  7. RYTARY [Suspect]
     Active Substance: CARBIDOPA\LEVODOPA
     Dosage: 48.75/195 MG 2 CAPSULES FOUR TIMES A DAY AT 07 AM, NOON, 5 PM AND 10 PM AT BEDTIME
     Route: 048
  8. NUPLAZID [Concomitant]
     Active Substance: PIMAVANSERIN TARTRATE
     Indication: NIGHTMARE
     Dosage: 34 MILLIGRAM, QD
     Route: 048
  9. RYTARY [Suspect]
     Active Substance: CARBIDOPA\LEVODOPA
     Dosage: (48.75/195) MG 2 CAPSULE, EVERY 5 HOUR
     Route: 048
     Dates: start: 2017, end: 2017
  10. RYTARY [Suspect]
     Active Substance: CARBIDOPA\LEVODOPA
     Dosage: 48.75 MG/195 MG 2 CAPSULES TWICE A DAY AND ONE CAPSULE TWICE A DAY
     Route: 048
     Dates: start: 2017
  11. RYTARY [Suspect]
     Active Substance: CARBIDOPA\LEVODOPA
     Dosage: (23.75/95 MG) 1A DF 4 /DAY + (36.25/145 MG) 2 DF 4 /DAY ND (36.25/145 MG) 1 DF IN LATE AFTERNOON
     Route: 048
  12. CARBIDOPA-LEVODOPA ER [Suspect]
     Active Substance: CARBIDOPA\LEVODOPA
     Indication: PARKINSON^S DISEASE
     Dosage: 25/100 MG, 4 TIMES A DAY
     Route: 065
  13. QUETIAPINE. [Concomitant]
     Active Substance: QUETIAPINE
     Indication: INSOMNIA
     Dosage: UNK, AS DIRECTED
     Route: 048
  14. RYTARY [Suspect]
     Active Substance: CARBIDOPA\LEVODOPA
     Dosage: 48.75/195MG 3 CAPSULES FOUR TIMES DAILY, 4 /DAY
     Route: 048
     Dates: start: 20170118
  15. MIRTAZAPINE. [Concomitant]
     Active Substance: MIRTAZAPINE
     Indication: INSOMNIA
     Dosage: 7.5 MILLIGRAM, QD
     Route: 048
  16. RYTARY [Suspect]
     Active Substance: CARBIDOPA\LEVODOPA
     Dosage: 48.75/195 MG 4 CAPSULES FOUR TIMES A DAY
     Route: 048
  17. RYTARY [Suspect]
     Active Substance: CARBIDOPA\LEVODOPA
     Dosage: 23.75MG/95M, 4 DOSAGE FORM, QID
     Route: 048
  18. ORENCIA [Concomitant]
     Active Substance: ABATACEPT
     Indication: RHEUMATOID ARTHRITIS
     Dosage: 1 DOSAGE FORM, 1 /MONTH
     Route: 042
  19. MIRTAZAPINE. [Concomitant]
     Active Substance: MIRTAZAPINE
     Indication: APPETITE DISORDER
     Dosage: 15 MG, UNK
     Route: 065
  20. NUPLAZID [Concomitant]
     Active Substance: PIMAVANSERIN TARTRATE
     Indication: PARKINSON^S DISEASE
     Dosage: 17 MILLIGRAM, BID
     Route: 048

REACTIONS (22)
  - On and off phenomenon [Unknown]
  - Pollakiuria [Recovered/Resolved]
  - Anxiety [Recovered/Resolved]
  - Product use complaint [Not Recovered/Not Resolved]
  - Freezing phenomenon [Not Recovered/Not Resolved]
  - Panic attack [Recovered/Resolved]
  - Abdominal discomfort [Recovered/Resolved]
  - Psychotic disorder [Recovered/Resolved]
  - Decreased appetite [Not Recovered/Not Resolved]
  - Eye irritation [Not Recovered/Not Resolved]
  - Urinary retention [Recovered/Resolved]
  - Constipation [Recovered/Resolved]
  - Dry mouth [Not Recovered/Not Resolved]
  - Dyskinesia [Recovered/Resolved]
  - Therapeutic response shortened [Unknown]
  - Agitation [Recovered/Resolved]
  - Speech disorder [Not Recovered/Not Resolved]
  - Blood pressure decreased [Not Recovered/Not Resolved]
  - Respiratory rate decreased [Not Recovered/Not Resolved]
  - Fatigue [Not Recovered/Not Resolved]
  - Gait disturbance [Not Recovered/Not Resolved]
  - Somnolence [Not Recovered/Not Resolved]

NARRATIVE: CASE EVENT DATE: 2016
